FAERS Safety Report 8200811-0 (Version None)
Quarter: 2012Q1

REPORT INFORMATION
  Report Type: 
  Country: None (occurrence: None)
  Receive Date: 20120312
  Receipt Date: 20120228
  Transmission Date: 20120608
  Serious: Yes (Hospitalization)
  Sender: FDA-Public Use
  Company Number: JP-AMGEN-JPNCT2011007529

PATIENT
  Age: 40 Year
  Sex: Male
  Weight: 102 kg

DRUGS (16)
  1. CORTICOSTEROIDS [Concomitant]
     Indication: PROPHYLAXIS
     Dosage: UNK
     Route: 065
  2. ALOXI [Concomitant]
     Indication: PROPHYLAXIS OF NAUSEA AND VOMITING
     Dosage: UNK
     Route: 042
     Dates: start: 20101102
  3. PANITUMUMAB [Suspect]
     Indication: COLORECTAL CANCER
     Dosage: 6 MG/KG, Q2WK
     Route: 041
     Dates: start: 20101102, end: 20101130
  4. FLUOROURACIL [Suspect]
     Indication: COLORECTAL CANCER
     Dosage: 800 MG, Q2WK
     Route: 040
     Dates: start: 20101102, end: 20110405
  5. FLUOROURACIL [Suspect]
     Route: 041
     Dates: start: 20110510
  6. OXALIPLATIN [Concomitant]
     Indication: COLORECTAL CANCER
     Route: 041
     Dates: start: 20101102, end: 20110405
  7. ANTIHISTAMINES [Concomitant]
     Indication: PROPHYLAXIS
     Dosage: UNK
     Route: 065
  8. PANITUMUMAB [Suspect]
     Dosage: 6 MG/KG, Q2WK
     Route: 041
     Dates: start: 20110222, end: 20110405
  9. OXALIPLATIN [Concomitant]
     Route: 041
     Dates: start: 20110510
  10. LEVOLEUCOVORIN CALCIUM [Concomitant]
     Indication: COLORECTAL CANCER
     Route: 041
     Dates: start: 20101102, end: 20110405
  11. CALCIUM CARBONATE [Concomitant]
     Indication: ELECTROLYTE SUBSTITUTION THERAPY
     Dosage: UNK UNK, BID
     Route: 042
     Dates: start: 20101102
  12. FLUOROURACIL [Suspect]
     Dosage: 4800 MG, Q2WK
     Route: 041
     Dates: start: 20101102, end: 20110405
  13. DECADRON [Concomitant]
     Indication: PROPHYLAXIS OF NAUSEA AND VOMITING
     Route: 042
     Dates: start: 20101102
  14. CONCLYTE MG [Concomitant]
     Indication: ELECTROLYTE SUBSTITUTION THERAPY
     Dosage: UNK UNK, BID
     Route: 042
     Dates: start: 20101102
  15. PANITUMUMAB [Suspect]
     Dosage: 6 MG/KG, Q2WK
     Route: 041
     Dates: start: 20101228, end: 20110125
  16. LEVOLEUCOVORIN CALCIUM [Concomitant]
     Dosage: 400 MG, Q2WK
     Route: 041
     Dates: start: 20110510

REACTIONS (5)
  - PARONYCHIA [None]
  - STOMATITIS [None]
  - DERMATITIS ACNEIFORM [None]
  - INTERSTITIAL LUNG DISEASE [None]
  - MOUTH ULCERATION [None]
